FAERS Safety Report 17411404 (Version 1)
Quarter: 2020Q1

REPORT INFORMATION
  Report Type: Spontaneous
  Country: US (occurrence: US)
  Receive Date: 20200128
  Receipt Date: 20200128
  Transmission Date: 20200409
  Serious: No
  Sender: FDA-Public Use
  Company Number: None

PATIENT
  Age: 53 Year
  Sex: Female

DRUGS (1)
  1. GLATIRAMER 40MG PFS INJ (12/BOX) [Suspect]
     Active Substance: GLATIRAMER
     Dosage: OTHER FREQUENCY:OTHER;?
     Route: 058
     Dates: start: 201908

REACTIONS (4)
  - Injection site warmth [None]
  - Headache [None]
  - Feeling abnormal [None]
  - Injection site reaction [None]

NARRATIVE: CASE EVENT DATE: 20200128
